FAERS Safety Report 5842958-X (Version None)
Quarter: 2008Q3

REPORT INFORMATION
  Report Type: 
  Country: None (occurrence: None)
  Receive Date: 20080811
  Receipt Date: 20080804
  Transmission Date: 20090109
  Serious: Yes (Other)
  Sender: FDA-Public Use
  Company Number: PAR_02186_2008

PATIENT
  Sex: Male
  Weight: 81.6475 kg

DRUGS (4)
  1. FLUTAMIDE [Suspect]
     Indication: PROSTATE EXAMINATION ABNORMAL
     Dosage: (125 MG 2X ORAL)
     Route: 048
     Dates: start: 20080414, end: 20080414
  2. LISINOPRIL AND HYDROCHLOROTHIAZIDE [Concomitant]
  3. METOPROLOL SUCCINATE [Concomitant]
  4. NORVASC [Concomitant]

REACTIONS (6)
  - DIZZINESS [None]
  - EYE PAIN [None]
  - FEELING ABNORMAL [None]
  - HEADACHE [None]
  - HYPERTENSIVE CRISIS [None]
  - IODINE ALLERGY [None]
